FAERS Safety Report 6395474-3 (Version None)
Quarter: 2009Q4

REPORT INFORMATION
  Report Type: 
  Country: None (occurrence: None)
  Receive Date: 20091009
  Receipt Date: 20090930
  Transmission Date: 20100525
  Serious: Yes (Hospitalization)
  Sender: FDA-Public Use
  Company Number: SE-CELGENEUS-150-20785-09090388

PATIENT
  Sex: Male
  Weight: 69 kg

DRUGS (9)
  1. THALIDOMIDE [Suspect]
     Indication: MULTIPLE MYELOMA
     Route: 048
  2. SENDOXAN [Suspect]
     Indication: MULTIPLE MYELOMA
     Route: 051
  3. DELTISON [Concomitant]
     Indication: DRUG USE FOR UNKNOWN INDICATION
     Route: 048
  4. OMEPRAZOLE [Concomitant]
     Indication: DYSPEPSIA
     Route: 048
  5. FUSIX [Concomitant]
     Indication: OEDEMA
     Route: 048
  6. CIPROFLOXACIN HYDROCHLORIDE [Concomitant]
     Indication: INFECTION
     Route: 048
     Dates: start: 20090906, end: 20090907
  7. FLUCONAZOLE [Concomitant]
     Indication: PROPHYLAXIS
     Route: 048
  8. ACYCLOVIR [Concomitant]
     Indication: PROPHYLAXIS
     Route: 048
  9. TAZOCIN [Concomitant]
     Indication: INFECTION
     Route: 051

REACTIONS (2)
  - MALNUTRITION [None]
  - THROMBOCYTOPENIA [None]
